FAERS Safety Report 5465708-8 (Version None)
Quarter: 2007Q3

REPORT INFORMATION
  Report Type: 
  Country: None (occurrence: None)
  Receive Date: 20070919
  Receipt Date: 20070919
  Transmission Date: 20080115
  Serious: Yes (Other)
  Sender: FDA-Public Use
  Company Number: None

PATIENT
  Sex: Male
  Weight: 79.3795 kg

DRUGS (1)
  1. MESALAMINE [Suspect]
     Indication: COLITIS ULCERATIVE
     Dosage: 4G/60ML  NIGHTLY  RECTAL
     Route: 054

REACTIONS (2)
  - COLITIS [None]
  - PHARMACEUTICAL PRODUCT COMPLAINT [None]
